FAERS Safety Report 26160534 (Version 1)
Quarter: 2025Q4

REPORT INFORMATION
  Report Type: Spontaneous
  Country: US (occurrence: US)
  Receive Date: 20251216
  Receipt Date: 20251216
  Transmission Date: 20260117
  Serious: No
  Sender: ALVOGEN
  Company Number: US-ALVOGEN-2025098302

PATIENT

DRUGS (1)
  1. FENTANYL [Suspect]
     Active Substance: FENTANYL
     Indication: Pain
     Dosage: 25 MCG/HR, EXPIRATION DATE: AUG-2027.

REACTIONS (6)
  - Pain [Unknown]
  - Device malfunction [Unknown]
  - Device adhesion issue [Unknown]
  - Therapeutic product effect delayed [Unknown]
  - Product odour abnormal [Unknown]
  - Product packaging difficult to open [Unknown]
